FAERS Safety Report 19180665 (Version 2)
Quarter: 2021Q2

REPORT INFORMATION
  Report Type: Report from Study
  Country: US (occurrence: US)
  Receive Date: 20210426
  Receipt Date: 20210520
  Transmission Date: 20210717
  Serious: Yes (Hospitalization)
  Sender: FDA-Public Use
  Company Number: US-GLAXOSMITHKLINE-US2021GSK090522

PATIENT
  Age: 63 Year
  Sex: Female
  Weight: 49.4 kg

DRUGS (4)
  1. NIRAPARIB [Suspect]
     Active Substance: NIRAPARIB
     Indication: BREAST CANCER
     Dosage: 200 MG, QD
     Route: 048
     Dates: start: 20210216, end: 20210418
  2. COVID?19 VACCINE NOS. [Concomitant]
     Active Substance: COVID-19 VACCINE NOS
     Dosage: UNK
     Dates: start: 20210301
  3. NIRAPARIB [Suspect]
     Active Substance: NIRAPARIB
     Dosage: UNK
     Route: 048
     Dates: start: 20210416
  4. DOSTARLIMAB [Suspect]
     Active Substance: DOSTARLIMAB
     Indication: BREAST CANCER
     Dosage: 500 MG, Z (EVERY 21 DAYS)
     Route: 042
     Dates: start: 20210309, end: 20210309

REACTIONS (2)
  - Liver function test increased [Unknown]
  - Pyrexia [Unknown]

NARRATIVE: CASE EVENT DATE: 20210418
